FAERS Safety Report 5240548-3 (Version None)
Quarter: 2007Q1

REPORT INFORMATION
  Report Type: 
  Country: None (occurrence: None)
  Receive Date: 20061208
  Receipt Date: 20060421
  Transmission Date: 20070707
  Serious: Yes (Other)
  Sender: FDA-Public Use
  Company Number: 2006UW07220

PATIENT
  Age: 81 Year
  Sex: Male
  Weight: 88.45 kg

DRUGS (5)
  1. CRESTOR [Suspect]
     Indication: BLOOD CHOLESTEROL INCREASED
     Dosage: 2.5 MG QOD PO
     Route: 048
     Dates: start: 20051001, end: 20060401
  2. CRESTOR [Suspect]
     Indication: BLOOD CHOLESTEROL INCREASED
     Dosage: 2 MG QD PO
     Route: 048
     Dates: start: 20060401
  3. PRILOSEC [Concomitant]
  4. INDERAL [Concomitant]
  5. VALIUM [Concomitant]

REACTIONS (1)
  - FEELING ABNORMAL [None]
